FAERS Safety Report 9016796 (Version 9)
Quarter: 2015Q3

REPORT INFORMATION
  Report Type: Report from Study
  Country: CA (occurrence: CA)
  Receive Date: 20130117
  Receipt Date: 20150916
  Transmission Date: 20151125
  Serious: Yes (Hospitalization)
  Sender: FDA-Public Use
  Company Number: PHHY2013CA004220

PATIENT
  Age: 71 Year
  Sex: Male

DRUGS (2)
  1. LEVOCARB [Concomitant]
     Active Substance: CARBIDOPA\LEVODOPA
     Indication: PARKINSON^S DISEASE
     Dosage: PRN
     Route: 065
  2. GLEEVEC [Suspect]
     Active Substance: IMATINIB MESYLATE
     Indication: GASTROINTESTINAL STROMAL TUMOUR
     Dosage: 400 MG, QD
     Route: 048
     Dates: start: 20091224

REACTIONS (13)
  - Fistula [Not Recovered/Not Resolved]
  - Fistula discharge [Not Recovered/Not Resolved]
  - Peripheral swelling [Recovered/Resolved]
  - Breast swelling [Recovering/Resolving]
  - Local swelling [Not Recovered/Not Resolved]
  - Fluid retention [Unknown]
  - Joint swelling [Unknown]
  - Visual acuity reduced [Not Recovered/Not Resolved]
  - Joint injury [Unknown]
  - Pain [Unknown]
  - Mass [Unknown]
  - Eye swelling [Recovering/Resolving]
  - Gynaecomastia [Unknown]

NARRATIVE: CASE EVENT DATE: 201410
